FAERS Safety Report 9410872 (Version 1)
Quarter: 2013Q3

REPORT INFORMATION
  Report Type: Spontaneous
  Country: CN (occurrence: CN)
  Receive Date: 20130719
  Receipt Date: 20130719
  Transmission Date: 20140515
  Serious: Yes (Death)
  Sender: FDA-Public Use
  Company Number: CN-ASTRAZENECA-2013SE53545

PATIENT
  Age: 50 Year
  Sex: Male

DRUGS (12)
  1. BETALOC [Suspect]
     Route: 048
     Dates: start: 20130704
  2. BETALOC [Suspect]
     Dosage: ADJUSTED TO 23.75 MG QD
     Route: 048
     Dates: start: 20130711
  3. BETALOC [Suspect]
     Dosage: 25 MG BETALOC WAS ADDED ONCE ORALLY
     Route: 048
     Dates: start: 20130713
  4. CRESTOR [Suspect]
     Route: 048
     Dates: start: 20130704, end: 20130714
  5. BAYASPIRIN [Suspect]
     Dates: start: 20130704
  6. XINKANG [Suspect]
     Dosage: 25 MG/DAY, 7 ML/H
     Dates: start: 20130704
  7. PLAVIX [Concomitant]
     Route: 048
     Dates: start: 20130704
  8. MONOPRIL [Concomitant]
     Route: 048
     Dates: start: 20130704
  9. ENOXAPARIN SODIUM [Concomitant]
     Dosage: 80000, 2 IN EVERY 12 HOURS
     Route: 058
     Dates: start: 20130704
  10. GLUCOPHAGE [Concomitant]
     Route: 048
     Dates: start: 20130704
  11. SODIUM CHLORIDE [Concomitant]
     Dosage: 50 ML, 250 ML, 250 ML / DAY, 7 ML/H
     Dates: start: 20130704
  12. SALVIANOLATE [Concomitant]
     Route: 042
     Dates: start: 20130704

REACTIONS (11)
  - Rhabdomyolysis [Fatal]
  - Psychiatric decompensation [Unknown]
  - General physical health deterioration [Unknown]
  - Abdominal distension [Unknown]
  - Gastrooesophageal reflux disease [Unknown]
  - Sinus tachycardia [Unknown]
  - Dyspnoea [Unknown]
  - Palpitations [Unknown]
  - Renal failure acute [None]
  - Blood pressure decreased [None]
  - Acute myocardial infarction [None]
